FAERS Safety Report 4846065-4 (Version None)
Quarter: 2005Q4

REPORT INFORMATION
  Report Type: 
  Country: None (occurrence: None)
  Receive Date: 20051130
  Receipt Date: 20051115
  Transmission Date: 20060501
  Serious: Yes (Life-Threatening, Hospitalization)
  Sender: FDA-Public Use
  Company Number: 2005S1010668

PATIENT
  Age: 45 Year
  Sex: Male
  Weight: 72.5755 kg

DRUGS (12)
  1. CLOZAPINE [Suspect]
     Indication: ANTISOCIAL PERSONALITY DISORDER
     Dosage: SEE IMAGE
     Route: 048
     Dates: start: 20050920, end: 20051020
  2. CLOZAPINE [Suspect]
     Indication: SCHIZOPHRENIA, UNDIFFERENTIATED TYPE
     Dosage: SEE IMAGE
     Route: 048
     Dates: start: 20050920, end: 20051020
  3. BENZTROPINE MESYLATE [Concomitant]
  4. VALPROIC ACID [Concomitant]
  5. LEVOFLOXACIN [Concomitant]
  6. LORAZEPAM [Concomitant]
  7. ERGOCALCIFEROL [Concomitant]
  8. ASCORBIC ACID [Concomitant]
  9. THIAMINE HCL [Concomitant]
  10. RETINOL [Concomitant]
  11. RIBOFLAVIN TAB [Concomitant]
  12. NICOTINAMIDE [Concomitant]

REACTIONS (14)
  - CARDIAC FAILURE [None]
  - COMA [None]
  - CONVULSION [None]
  - DIALYSIS [None]
  - GENERAL PHYSICAL HEALTH DETERIORATION [None]
  - HYPONATRAEMIA [None]
  - INFECTION [None]
  - LETHARGY [None]
  - PNEUMONIA ASPIRATION [None]
  - POLYDIPSIA [None]
  - RENAL FAILURE [None]
  - RESPIRATORY FAILURE [None]
  - VASCULITIS [None]
  - WHITE BLOOD CELL COUNT INCREASED [None]
